FAERS Safety Report 5774793-5 (Version None)
Quarter: 2008Q2

REPORT INFORMATION
  Report Type: 
  Country: None (occurrence: None)
  Receive Date: 20080617
  Receipt Date: 20080604
  Transmission Date: 20081010
  Serious: Yes (Life-Threatening)
  Sender: FDA-Public Use
  Company Number: BE-WATSON-2008-03415

PATIENT
  Sex: Female

DRUGS (2)
  1. TRELSTAR DEPOT (WITH CLIP'N'JECT) (WATSON LABORATORIES) [Suspect]
     Indication: BREAST CANCER FEMALE
     Dosage: 3.75 MG, UNKNOWN
     Route: 030
     Dates: start: 20060719, end: 20080519
  2. EXEMESTANE [Suspect]
     Indication: BREAST CANCER FEMALE
     Dosage: 25 MG, UNKNOWN
     Route: 048
     Dates: start: 20060720, end: 20080519

REACTIONS (2)
  - HYPERBILIRUBINAEMIA [None]
  - LIVER DISORDER [None]
